FAERS Safety Report 7792603-1 (Version None)
Quarter: 2011Q4

REPORT INFORMATION
  Report Type: 
  Country: None (occurrence: None)
  Receive Date: 20111003
  Receipt Date: 20110922
  Transmission Date: 20120403
  Serious: Yes (Other)
  Sender: FDA-Public Use
  Company Number: DE-ASTRAZENECA-2011SE57489

PATIENT
  Age: 58 Year
  Sex: Female

DRUGS (4)
  1. METOPROLOL SUCCINATE [Suspect]
     Indication: HYPERTENSION
     Dosage: DAILY
     Route: 048
     Dates: start: 20000101, end: 20040101
  2. ATACAND HCT [Suspect]
     Dosage: 16/12.5 MG DAILY
     Route: 048
     Dates: start: 20090901
  3. ATACAND HCT [Suspect]
     Indication: HYPERTENSION
     Dosage: 16/12.5 MG DAILY
     Route: 048
     Dates: start: 20040101, end: 20090301
  4. METOPROLOL SUCCINATE [Suspect]
     Dosage: DAILY BELOC ZOK MITE
     Route: 048
     Dates: start: 20040101

REACTIONS (2)
  - LEUKOPENIA [None]
  - NEUTROPENIA [None]
